FAERS Safety Report 20841489 (Version 1)
Quarter: 2022Q2

REPORT INFORMATION
  Report Type: Spontaneous
  Country: RU (occurrence: RU)
  Receive Date: 20220518
  Receipt Date: 20220518
  Transmission Date: 20220720
  Serious: Yes (Life-Threatening, Disabling, Other)
  Sender: FDA-Public Use
  Company Number: RU-BEH-2022145357

PATIENT
  Age: 11 Year
  Sex: Male

DRUGS (1)
  1. PRIVIGEN [Suspect]
     Active Substance: HUMAN IMMUNOGLOBULIN G
     Indication: Immunodeficiency congenital
     Dosage: 10 GRAM, QMT
     Route: 042
     Dates: start: 20201119, end: 20201225

REACTIONS (3)
  - Dermatitis atopic [Recovering/Resolving]
  - Generalised tonic-clonic seizure [Not Recovered/Not Resolved]
  - Walking disability [Not Recovered/Not Resolved]
